FAERS Safety Report 16038899 (Version 1)
Quarter: 2019Q1

REPORT INFORMATION
  Report Type: Spontaneous
  Country: US (occurrence: US)
  Receive Date: 20190206
  Receipt Date: 20190206
  Transmission Date: 20190418
  Serious: No
  Sender: FDA-Public Use
  Company Number: None

PATIENT
  Age: 17 Year
  Sex: Male

DRUGS (1)
  1. ORENCIA [Suspect]
     Active Substance: ABATACEPT
     Dates: start: 201807

REACTIONS (3)
  - Therapeutic response decreased [None]
  - Injection site reaction [None]
  - Nausea [None]

NARRATIVE: CASE EVENT DATE: 20190205
